FAERS Safety Report 14155133 (Version 3)
Quarter: 2018Q2

REPORT INFORMATION
  Report Type: Report from Study
  Country: None (occurrence: DE)
  Receive Date: 20171103
  Receipt Date: 20180421
  Transmission Date: 20180711
  Serious: Yes (Death, Hospitalization)
  Sender: FDA-Public Use
  Company Number: DE-ABBVIE-17K-062-2135101-00

PATIENT
  Age: 77 Year
  Sex: Male
  Weight: 90 kg

DRUGS (10)
  1. HUMIRA [Suspect]
     Active Substance: ADALIMUMAB
     Indication: PSORIASIS
     Route: 058
     Dates: start: 20170517, end: 20170721
  2. ASPIRIN. [Concomitant]
     Active Substance: ASPIRIN
     Indication: PRODUCT USED FOR UNKNOWN INDICATION
  3. BISOPROLOL [Concomitant]
     Active Substance: BISOPROLOL
     Indication: PRODUCT USED FOR UNKNOWN INDICATION
  4. HUMIRA [Suspect]
     Active Substance: ADALIMUMAB
     Indication: PSORIATIC ARTHROPATHY
  5. PANTOZOL [Concomitant]
     Active Substance: PANTOPRAZOLE SODIUM
     Indication: PRODUCT USED FOR UNKNOWN INDICATION
  6. SIMVASTATIN. [Concomitant]
     Active Substance: SIMVASTATIN
     Indication: PRODUCT USED FOR UNKNOWN INDICATION
  7. METFORMIN [Concomitant]
     Active Substance: METFORMIN HYDROCHLORIDE
     Indication: PRODUCT USED FOR UNKNOWN INDICATION
  8. LEVOTHYROXIN [Concomitant]
     Active Substance: LEVOTHYROXINE
     Indication: PRODUCT USED FOR UNKNOWN INDICATION
  9. ATACAND [Concomitant]
     Active Substance: CANDESARTAN CILEXETIL
     Indication: PRODUCT USED FOR UNKNOWN INDICATION
  10. RAMIPRIL. [Concomitant]
     Active Substance: RAMIPRIL
     Indication: PRODUCT USED FOR UNKNOWN INDICATION

REACTIONS (34)
  - Aortic arteriosclerosis [Unknown]
  - Basilar artery aneurysm [Recovered/Resolved]
  - Skin exfoliation [Unknown]
  - Cardiac failure [Unknown]
  - Osteoarthritis [Unknown]
  - Arthralgia [Unknown]
  - Speech disorder [Unknown]
  - Dysarthria [Unknown]
  - Pruritus [Unknown]
  - Back pain [Unknown]
  - Basilar artery aneurysm [Not Recovered/Not Resolved]
  - Aortic elongation [Unknown]
  - Vascular occlusion [Unknown]
  - Syncope [Fatal]
  - Onycholysis [Unknown]
  - Hypertension [Unknown]
  - Skin candida [Unknown]
  - Cerebral ischaemia [Recovered/Resolved]
  - Atrioventricular block first degree [Not Recovered/Not Resolved]
  - Coronary artery disease [Unknown]
  - Psoriasis [Unknown]
  - Subdural haematoma [Recovered/Resolved]
  - Chest discomfort [Unknown]
  - Tuberculosis [Unknown]
  - Hyperkeratosis [Unknown]
  - Cerebral artery stenosis [Not Recovered/Not Resolved]
  - Intracranial aneurysm [Not Recovered/Not Resolved]
  - Type 2 diabetes mellitus [Not Recovered/Not Resolved]
  - C-reactive protein increased [Unknown]
  - Spinal osteoarthritis [Unknown]
  - Inflammation [Unknown]
  - Hypoaesthesia [Recovered/Resolved]
  - Cerebral haemorrhage [Not Recovered/Not Resolved]
  - Paraesthesia [Recovered/Resolved]

NARRATIVE: CASE EVENT DATE: 2017
